FAERS Safety Report 19158191 (Version 2)
Quarter: 2021Q2

REPORT INFORMATION
  Report Type: Spontaneous
  Country: US (occurrence: US)
  Receive Date: 20210420
  Receipt Date: 20210630
  Transmission Date: 20210717
  Serious: Yes (Other)
  Sender: FDA-Public Use
  Company Number: US-PFIZER INC-2021330886

PATIENT
  Age: 39 Year
  Sex: Male

DRUGS (1)
  1. XELJANZ [Suspect]
     Active Substance: TOFACITINIB CITRATE
     Dosage: 5 MG
     Dates: end: 20210601

REACTIONS (7)
  - Suicidal ideation [Unknown]
  - Pain [Unknown]
  - Product dose omission issue [Unknown]
  - Osteoporosis [Unknown]
  - Cyst [Unknown]
  - Depression [Unknown]
  - Back disorder [Unknown]

NARRATIVE: CASE EVENT DATE: 20210601
